FAERS Safety Report 7918502-X (Version None)
Quarter: 2011Q4

REPORT INFORMATION
  Report Type: 
  Country: None (occurrence: None)
  Receive Date: 20111116
  Receipt Date: 20111014
  Transmission Date: 20120403
  Serious: No
  Sender: FDA-Public Use
  Company Number: US-COVIDIEN/TYCO HEALTHCARE/MALLINCKRODT-T201102315

PATIENT
  Sex: Female
  Weight: 47.619 kg

DRUGS (6)
  1. TEMAZEPAM [Concomitant]
     Indication: INSOMNIA
     Dosage: 15 MG, AT BEDTIME
     Route: 048
  2. FENTANYL [Concomitant]
     Dosage: 50 UG/HR, Q THREE DAYS
     Dates: start: 20110801, end: 20111010
  3. FENTANYL-100 [Suspect]
     Indication: MYOFASCIAL PAIN SYNDROME
     Dosage: 75 UG/HR Q 3 DAYS, USED 2 PATCHES
     Route: 062
     Dates: start: 20111010, end: 20111015
  4. LOSARTAN [Concomitant]
     Dosage: 100 MG, UNK
     Route: 048
  5. ATIVAN [Concomitant]
     Indication: ANXIETY
     Route: 048
  6. BUSPAR [Concomitant]

REACTIONS (5)
  - NAUSEA [None]
  - DIZZINESS [None]
  - THIRST [None]
  - ASTHENIA [None]
  - CONFUSIONAL STATE [None]
